FAERS Safety Report 4621722-3 (Version None)
Quarter: 2005Q1

REPORT INFORMATION
  Report Type: 
  Country: None (occurrence: None)
  Receive Date: 20050329
  Receipt Date: 20050118
  Transmission Date: 20050727
  Serious: Yes (Death, Other)
  Sender: FDA-Public Use
  Company Number: PHEH2005US01035

PATIENT
  Age: 87 Year
  Sex: Female

DRUGS (5)
  1. ZOMETA [Suspect]
     Indication: METASTASES TO BONE
     Dosage: UNK, UNK
     Dates: start: 20010410
  2. FEMARA [Concomitant]
  3. LOPRESSOR [Concomitant]
  4. LASIX [Concomitant]
  5. POTASSIUM CHLORIDE [Concomitant]

REACTIONS (13)
  - ABSCESS ORAL [None]
  - BONE DEBRIDEMENT [None]
  - BONE DISORDER [None]
  - CARDIAC FAILURE [None]
  - IMPAIRED HEALING [None]
  - INCISIONAL DRAINAGE [None]
  - INFECTION [None]
  - INFLAMMATION [None]
  - LOCAL ANAESTHESIA [None]
  - LOCAL SWELLING [None]
  - OSTEONECROSIS [None]
  - PAIN [None]
  - TOOTH LOSS [None]
